FAERS Safety Report 12616212 (Version 2)
Quarter: 2016Q3

REPORT INFORMATION
  Report Type: Report from Study
  Country: AR (occurrence: AR)
  Receive Date: 20160802
  Receipt Date: 20160830
  Transmission Date: 20161109
  Serious: Yes (Hospitalization)
  Sender: FDA-Public Use
  Company Number: PHHY2016AR103497

PATIENT
  Age: 56 Year
  Sex: Male

DRUGS (1)
  1. EXFORGE [Suspect]
     Active Substance: AMLODIPINE BESYLATE\VALSARTAN
     Indication: HYPERTENSION
     Dosage: 2 DF (AMLODIPINE 5, VALSARTAN 80 UNITS NOT PROVIDED),  QD, 3 YEARS AGO
     Route: 065

REACTIONS (4)
  - Blood triglycerides increased [Unknown]
  - Intervertebral disc compression [Recovered/Resolved]
  - Hypokinesia [Recovered/Resolved]
  - Gait disturbance [Recovered/Resolved]

NARRATIVE: CASE EVENT DATE: 20160726
